FAERS Safety Report 8935311 (Version 1)
Quarter: 2012Q4

REPORT INFORMATION
  Report Type: Report from Study
  Country: KR (occurrence: KR)
  Receive Date: 20121129
  Receipt Date: 20121129
  Transmission Date: 20130627
  Serious: Yes (Hospitalization)
  Sender: FDA-Public Use
  Company Number: KR-GLAXOSMITHKLINE-B0848231A

PATIENT
  Age: 64 Year
  Sex: Female
  Weight: 55 kg

DRUGS (10)
  1. LAPATINIB [Suspect]
     Indication: BREAST CANCER METASTATIC
     Route: 048
     Dates: start: 20120920
  2. XELODA [Suspect]
     Indication: BREAST CANCER METASTATIC
     Dosage: 1400MG Twice per day
     Route: 048
     Dates: start: 20120920
  3. TARGIN [Concomitant]
     Indication: PAIN
     Dates: start: 20120504
  4. PONTAL [Concomitant]
     Indication: PAIN
     Route: 048
     Dates: start: 20120702
  5. NEUROTIN [Concomitant]
     Indication: NEUROPATHY PERIPHERAL
     Route: 048
     Dates: start: 20120827
  6. AMLODIPINE [Concomitant]
     Indication: HYPERTENSION
     Route: 048
     Dates: start: 20120426
  7. TRAZODONE [Concomitant]
     Indication: INSOMNIA
     Route: 048
     Dates: start: 20120508
  8. ALPRAZOLAM [Concomitant]
     Indication: INSOMNIA
     Route: 048
     Dates: start: 20120508
  9. CALCIUM CARBONATE + CHOLECALCIFEROL [Concomitant]
     Route: 048
     Dates: start: 20120426
  10. WARFARIN [Concomitant]
     Route: 048
     Dates: start: 20120508

REACTIONS (2)
  - Generalised oedema [Recovering/Resolving]
  - Hypophagia [Recovering/Resolving]
